FAERS Safety Report 5002386-6 (Version None)
Quarter: 2006Q2

REPORT INFORMATION
  Report Type: 
  Country: None (occurrence: None)
  Receive Date: 20060515
  Receipt Date: 20060505
  Transmission Date: 20061013
  Serious: Yes (Hospitalization)
  Sender: FDA-Public Use
  Company Number: US-ABBOTT-06P-163-0332658-00

PATIENT
  Age: 21 Year
  Sex: Male

DRUGS (2)
  1. LEXAPRO [Suspect]
     Indication: SUICIDE ATTEMPT
     Route: 048
  2. LEXAPRO [Suspect]
     Indication: DEPRESSION

REACTIONS (3)
  - INTENTIONAL OVERDOSE [None]
  - NAUSEA [None]
  - SUICIDE ATTEMPT [None]
